FAERS Safety Report 7779675-5 (Version None)
Quarter: 2011Q3

REPORT INFORMATION
  Report Type: 
  Country: None (occurrence: None)
  Receive Date: 20110927
  Receipt Date: 20110829
  Transmission Date: 20111222
  Serious: Yes (Other)
  Sender: FDA-Public Use
  Company Number: NO-BAYER-2011-079050

PATIENT
  Sex: Female

DRUGS (1)
  1. MIRENA [Suspect]
     Indication: CONTRACEPTION

REACTIONS (4)
  - VULVAL CANCER STAGE 0 [None]
  - SQUAMOUS CELL CARCINOMA [None]
  - ANOGENITAL DYSPLASIA [None]
  - CERVICAL DYSPLASIA [None]
